FAERS Safety Report 6465542-6 (Version None)
Quarter: 2009Q4

REPORT INFORMATION
  Report Type: 
  Country: None (occurrence: None)
  Receive Date: 20091124
  Receipt Date: 20091113
  Transmission Date: 20100525
  Serious: Yes (Other)
  Sender: FDA-Public Use
  Company Number: 435828

PATIENT
  Age: 7 Year
  Sex: Male

DRUGS (3)
  1. VANCOMYCIN [Suspect]
  2. DAPTOMYCIN [Suspect]
  3. LINEZOLID [Concomitant]

REACTIONS (4)
  - DISEASE PROGRESSION [None]
  - LOWER RESPIRATORY TRACT INFECTION [None]
  - NO THERAPEUTIC RESPONSE [None]
  - STAPHYLOCOCCAL BACTERAEMIA [None]
